FAERS Safety Report 5699844-8 (Version None)
Quarter: 2008Q2

REPORT INFORMATION
  Report Type: 
  Country: None (occurrence: None)
  Receive Date: 20080407
  Receipt Date: 20080324
  Transmission Date: 20081010
  Serious: Yes (Hospitalization)
  Sender: FDA-Public Use
  Company Number: 2008AL001808

PATIENT
  Age: 63 Year
  Sex: Male

DRUGS (4)
  1. METFORMIN HCL [Suspect]
     Dosage: 500 MG; BID; PO
     Route: 048
  2. GLYBURIDE [Concomitant]
  3. ALLOPURINOL [Concomitant]
  4. ASPIRIN [Concomitant]

REACTIONS (6)
  - CHOLANGITIS [None]
  - CHOLECYSTITIS CHRONIC [None]
  - HEPATIC FIBROSIS [None]
  - HEPATIC NECROSIS [None]
  - HEPATITIS [None]
  - PORTAL TRIADITIS [None]
